FAERS Safety Report 9675591 (Version 2)
Quarter: 2014Q1

REPORT INFORMATION
  Report Type: Spontaneous
  Country: DE (occurrence: DE)
  Receive Date: 20131107
  Receipt Date: 20140114
  Transmission Date: 20141002
  Serious: Yes (Other)
  Sender: FDA-Public Use
  Company Number: DE-PFIZER INC-2013315661

PATIENT
  Age: 27 Year
  Sex: Male
  Weight: 90 kg

DRUGS (1)
  1. CELECOXIB [Suspect]
     Indication: LIGAMENT SPRAIN
     Dosage: 200 MG, 1X/DAY
     Route: 048
     Dates: start: 201310

REACTIONS (2)
  - Superinfection bacterial [Not Recovered/Not Resolved]
  - Herpes simplex [Not Recovered/Not Resolved]
